FAERS Safety Report 12693608 (Version 3)
Quarter: 2016Q4

REPORT INFORMATION
  Report Type: Spontaneous
  Country: JP (occurrence: JP)
  Receive Date: 20160829
  Receipt Date: 20161014
  Transmission Date: 20170207
  Serious: Yes (Death, Other)
  Sender: FDA-Public Use
  Company Number: JP-ASTELLAS-2016JP014244AA

PATIENT
  Age: 69 Year
  Sex: Female

DRUGS (1)
  1. PROGRAF [Suspect]
     Active Substance: TACROLIMUS\TACROLIMUS ANHYDROUS
     Indication: STEM CELL TRANSPLANT
     Dosage: UNK UNK, UNKNOWN FREQ.
     Route: 041
     Dates: start: 20160811, end: 20160820

REACTIONS (4)
  - Infection [Not Recovered/Not Resolved]
  - Renal impairment [Unknown]
  - Toxic encephalopathy [Fatal]
  - General physical health deterioration [Not Recovered/Not Resolved]
